FAERS Safety Report 10838164 (Version 1)
Quarter: 2015Q1

REPORT INFORMATION
  Report Type: Report from Study
  Country: US (occurrence: US)
  Receive Date: 20150219
  Receipt Date: 20150219
  Transmission Date: 20150721
  Serious: No
  Sender: FDA-Public Use
  Company Number: US-ABBVIE-14P-163-1226699-00

PATIENT
  Age: 54 Year
  Sex: Female

DRUGS (6)
  1. HUMIRA [Suspect]
     Active Substance: ADALIMUMAB
     Indication: CROHN^S DISEASE
     Dosage: LOADING DOSE; FOUR PENS
     Dates: start: 20140410, end: 20140410
  2. ENTOCORT [Concomitant]
     Active Substance: BUDESONIDE
     Indication: PRODUCT USED FOR UNKNOWN INDICATION
     Dosage: FOR ONE WEEK
  3. TYLENOL [Concomitant]
     Active Substance: ACETAMINOPHEN
     Indication: PRODUCT USED FOR UNKNOWN INDICATION
     Dosage: ON OCCASION
  4. HUMIRA [Suspect]
     Active Substance: ADALIMUMAB
  5. ENTOCORT [Concomitant]
     Active Substance: BUDESONIDE
     Dosage: PILLS, FOR ONE WEEK
  6. HUMIRA [Suspect]
     Active Substance: ADALIMUMAB
     Dosage: TWO PENS
     Dates: start: 20140424, end: 20140424

REACTIONS (8)
  - Fatigue [Not Recovered/Not Resolved]
  - Injection site bruising [Recovering/Resolving]
  - Device issue [Recovering/Resolving]
  - Incorrect dose administered [Unknown]
  - Injection site pain [Not Recovered/Not Resolved]
  - Weight increased [Unknown]
  - Injection site swelling [Recovered/Resolved]
  - Abdominal pain [Not Recovered/Not Resolved]

NARRATIVE: CASE EVENT DATE: 201404
